FAERS Safety Report 9688773 (Version 4)
Quarter: 2014Q1

REPORT INFORMATION
  Report Type: Spontaneous
  Country: US (occurrence: None)
  Receive Date: 20131113
  Receipt Date: 20140305
  Transmission Date: 20141002
  Serious: Yes (Death, Hospitalization, Other)
  Sender: FDA-Public Use
  Company Number: US-JNJFOC-20131104424

PATIENT
  Age: 78 Year
  Sex: Female
  Weight: 101.15 kg

DRUGS (17)
  1. DACOGEN [Suspect]
     Indication: ACUTE MYELOID LEUKAEMIA
     Dosage: 40 MG, 1 IN 1 DAY
     Route: 042
     Dates: start: 20130520, end: 20130524
  2. ONDANSETRON HCL (ONDANSETRON HYDROCHLORIDE) [Concomitant]
  3. OXYCODONE HCL (OXYCODONE HYDROCHLORIDE) [Concomitant]
  4. MUCINEX [Concomitant]
  5. DROTAVERIN (DROTAVERINE) [Concomitant]
  6. TYLENOL (PARACETAMOL) [Concomitant]
  7. ZOFRAN (ONDANSETRON) [Concomitant]
  8. NORVASC (AMLODIPINE BESILATE) [Concomitant]
  9. TOPROL (METOPROLOL SUCCINATE) [Concomitant]
  10. ZYRTEC (CETIRIZINE HYDROCHLORIDE) [Concomitant]
  11. PRILOSEC (OMEPRAZOLE) [Concomitant]
  12. MONTELUKAST SODIUM [Concomitant]
  13. PLAVIX [Concomitant]
  14. AMIODARONE HCL [Concomitant]
  15. FLEXERIL (CYCLOBENZAPRINE HYDROCHLORIDE) [Concomitant]
  16. NASACORT (TRIAMCIONLONE ACETONIDE) [Concomitant]
  17. FLOVENT HFA (FLUTICASONE PROPIONATE) [Concomitant]

REACTIONS (15)
  - Necrosis [None]
  - Panniculitis [None]
  - Nodule [None]
  - Skin necrosis [None]
  - Breast necrosis [None]
  - Fatigue [None]
  - Lower respiratory tract infection [None]
  - Pain [None]
  - Septal panniculitis [None]
  - Haematocrit decreased [None]
  - Haemoglobin decreased [None]
  - Red blood cell count decreased [None]
  - Wound infection [None]
  - Leukaemia [None]
  - Disease complication [None]
